FAERS Safety Report 18358180 (Version 4)
Quarter: 2021Q3

REPORT INFORMATION
  Report Type: Other
  Country: JP (occurrence: JP)
  Receive Date: 20201007
  Receipt Date: 20210729
  Transmission Date: 20211014
  Serious: Yes (Death, Hospitalization, Other)
  Sender: FDA-Public Use
  Company Number: JP-ROCHE-2689256

PATIENT
  Age: 78 Year
  Sex: Female

DRUGS (2)
  1. PACLITAXEL ALBUMIN [Concomitant]
     Active Substance: PACLITAXEL
     Indication: INVASIVE DUCTAL BREAST CARCINOMA
     Route: 041
  2. TECENTRIQ [Suspect]
     Active Substance: ATEZOLIZUMAB
     Indication: INVASIVE DUCTAL BREAST CARCINOMA
     Dosage: DOSAGE IS UNCERTAIN.
     Route: 041

REACTIONS (6)
  - Pancreatitis acute [Unknown]
  - Stevens-Johnson syndrome [Unknown]
  - Invasive ductal breast carcinoma [Fatal]
  - Guillain-Barre syndrome [Unknown]
  - Type 1 diabetes mellitus [Unknown]
  - Thrombocytopenia [Unknown]
